APPROVED DRUG PRODUCT: DEMSER
Active Ingredient: METYROSINE
Strength: 250MG
Dosage Form/Route: CAPSULE;ORAL
Application: N017871 | Product #001 | TE Code: AB
Applicant: BAUSCH HEALTH US LLC
Approved: Approved Prior to Jan 1, 1982 | RLD: Yes | RS: Yes | Type: RX